FAERS Safety Report 6790858-3 (Version None)
Quarter: 2010Q2

REPORT INFORMATION
  Report Type: 
  Country: None (occurrence: None)
  Receive Date: 20100624
  Receipt Date: 20100616
  Transmission Date: 20101027
  Serious: Yes (Hospitalization)
  Sender: FDA-Public Use
  Company Number: A0866440A

PATIENT
  Age: 60 Year
  Sex: Male

DRUGS (1)
  1. AVANDIA [Suspect]
     Dosage: 4MG SINGLE DOSE
     Route: 048
     Dates: start: 20021001, end: 20071001

REACTIONS (3)
  - ARTERIOSCLEROSIS [None]
  - CARDIAC DISORDER [None]
  - FATIGUE [None]
